FAERS Safety Report 6433146-7 (Version None)
Quarter: 2009Q4

REPORT INFORMATION
  Report Type: 
  Country: None (occurrence: None)
  Receive Date: 20091109
  Receipt Date: 20091026
  Transmission Date: 20100525
  Serious: Yes (Other)
  Sender: FDA-Public Use
  Company Number: PHHY2009CA44197

PATIENT
  Sex: Male

DRUGS (1)
  1. DIOVAN [Suspect]
     Indication: CARDIAC FAILURE CONGESTIVE
     Dosage: 1 TABLET (80 MG) DAILY
     Route: 048
     Dates: start: 20041001

REACTIONS (2)
  - HEART RATE DECREASED [None]
  - IMPLANTABLE DEFIBRILLATOR INSERTION [None]
